FAERS Safety Report 6866489-3 (Version None)
Quarter: 2010Q3

REPORT INFORMATION
  Report Type: 
  Country: None (occurrence: None)
  Receive Date: 20100722
  Receipt Date: 20100709
  Transmission Date: 20110219
  Serious: Yes (Other)
  Sender: FDA-Public Use
  Company Number: PHHY2010FR45551

PATIENT
  Sex: Male
  Weight: 93 kg

DRUGS (15)
  1. AREDIA [Suspect]
     Indication: COMPLEX REGIONAL PAIN SYNDROME
     Dosage: 6 MG, UNK
     Dates: start: 20100426
  2. INDAPAMIDE [Concomitant]
     Dosage: UNK
     Dates: start: 19970101
  3. CRESTOR [Concomitant]
     Dosage: UNK
     Dates: start: 19980101
  4. ISOPTIN [Concomitant]
     Dosage: UNK
     Dates: start: 19970101
  5. INIPOMP [Concomitant]
     Dosage: UNK
     Dates: start: 19980101
  6. GLUCOPHAGE [Concomitant]
     Dosage: UNK
     Dates: start: 19980101
  7. DIAMICRON [Concomitant]
     Dosage: UNK
     Dates: start: 20060101
  8. SPIRIVA [Concomitant]
     Dosage: UNK
     Dates: start: 20060101
  9. PERMIXON [Concomitant]
     Dosage: UNK
     Dates: start: 20060101
  10. EFFEXOR [Concomitant]
     Dosage: UNK
     Dates: start: 20060101
  11. SULFARLEM [Concomitant]
     Dosage: UNK
     Dates: start: 20060101
  12. TAMSULOSIN HCL [Concomitant]
     Dosage: UNK
     Dates: start: 20070101
  13. BUSPAR [Concomitant]
     Dosage: UNK
     Dates: start: 20080101
  14. KALEORID [Concomitant]
     Dosage: UNK
     Dates: start: 20090101
  15. AMITRIPTYLINE HCL [Concomitant]
     Dosage: UNK
     Dates: start: 20100101

REACTIONS (2)
  - CONJUNCTIVAL OEDEMA [None]
  - EYE DISORDER [None]
